FAERS Safety Report 13447361 (Version 1)
Quarter: 2017Q2

REPORT INFORMATION
  Report Type: Spontaneous
  Country: US (occurrence: US)
  Receive Date: 20170416
  Receipt Date: 20170416
  Transmission Date: 20170830
  Serious: Yes (Disabling)
  Sender: FDA-Public Use
  Company Number: None

PATIENT
  Age: 55 Year
  Sex: Female
  Weight: 77.4 kg

DRUGS (15)
  1. ESTER C [Concomitant]
  2. CINNAMON. [Concomitant]
     Active Substance: CINNAMON
  3. MULTI-VITAMIN [Concomitant]
     Active Substance: .ALPHA.-TOCOPHEROL ACETATE, DL-\ASCORBIC ACID\CYANOCOBALAMIN\FLUORIDE ION\FOLIC ACID\NIACIN\PYRIDOXINE\RIBOFLAVIN\THIAMINE\VITAMIN A\VITAMIN D
  4. VITAMIN D3 [Concomitant]
     Active Substance: CHOLECALCIFEROL
  5. LISINIPRIL [Concomitant]
  6. LOVASTATIN. [Concomitant]
     Active Substance: LOVASTATIN
  7. METOPROLOL TARTRATE. [Concomitant]
     Active Substance: METOPROLOL TARTRATE
  8. ASPIRIN. [Concomitant]
     Active Substance: ASPIRIN
  9. VITAMIN B COMPLEX [Concomitant]
     Active Substance: CYANOCOBALAMIN\DEXPANTHENOL\NIACINAMIDE\PYRIDOXINE HYDROCHLORIDE\RIBOFLAVIN 5^-PHOSPHATE SODIUM\THIAMINE HYDROCHLORIDE\VITAMIN B COMPLEX
  10. FISH OIL [Concomitant]
     Active Substance: FISH OIL
  11. NIACIN. [Concomitant]
     Active Substance: NIACIN
  12. POTASSIUM [Concomitant]
     Active Substance: POTASSIUM
  13. DILTIAZEM 30MG TABLETS [Suspect]
     Active Substance: DILTIAZEM
     Indication: HYPERTENSION
     Dosage: ?          QUANTITY:1 TABLET(S);?
     Route: 048
     Dates: start: 20170325, end: 20170416
  14. GARLIC. [Concomitant]
     Active Substance: GARLIC
  15. COQ10 [Concomitant]
     Active Substance: UBIDECARENONE

REACTIONS (17)
  - Sleep apnoea syndrome [None]
  - Wheezing [None]
  - Myalgia [None]
  - Hypertension [None]
  - Cough [None]
  - Dyspnoea [None]
  - Abdominal distension [None]
  - Peripheral swelling [None]
  - Rhinorrhoea [None]
  - Abdominal pain upper [None]
  - Tonsillar disorder [None]
  - Upper-airway cough syndrome [None]
  - Oropharyngeal pain [None]
  - Sneezing [None]
  - Anger [None]
  - Asthenia [None]
  - Back pain [None]

NARRATIVE: CASE EVENT DATE: 20170415
